FAERS Safety Report 9339736 (Version 3)
Quarter: 2014Q1

REPORT INFORMATION
  Report Type: Report from Study
  Country: BR (occurrence: BR)
  Receive Date: 20130610
  Receipt Date: 20140131
  Transmission Date: 20141002
  Serious: Yes (Other)
  Sender: FDA-Public Use
  Company Number: PHHY2013BR057877

PATIENT
  Age: 60 Year
  Sex: Female

DRUGS (5)
  1. DIOVAN [Suspect]
     Indication: HYPERTENSION
     Dosage: 80 MG, NO TREATMENT
  2. DIOVAN [Suspect]
     Dosage: 80 MG, UNK
     Route: 048
  3. DIOVAN [Suspect]
     Dosage: 2 DF, (80 MG) PER DAY
     Route: 048
  4. CAPTOPRIL [Suspect]
     Dosage: UNK UKN, UNK
  5. ENALAPRIL [Suspect]
     Dosage: 2 DF (10MG), A DAY
     Route: 048

REACTIONS (6)
  - Glaucoma [Unknown]
  - Hypertension [Unknown]
  - Anxiety [Unknown]
  - Agitation [Unknown]
  - Nervousness [Unknown]
  - Blood pressure inadequately controlled [Unknown]
